FAERS Safety Report 20697858 (Version 2)
Quarter: 2022Q2

REPORT INFORMATION
  Report Type: Spontaneous
  Country: IT (occurrence: IT)
  Receive Date: 20220412
  Receipt Date: 20220525
  Transmission Date: 20220720
  Serious: Yes (Other)
  Sender: FDA-Public Use
  Company Number: IT-SUN PHARMACEUTICAL INDUSTRIES LTD-2022R1-332778

PATIENT
  Age: 36 Year
  Sex: Female

DRUGS (1)
  1. CLOZAPINE [Suspect]
     Active Substance: CLOZAPINE
     Indication: Schizophrenia
     Dosage: 225 MILLIGRAM, DAILY
     Route: 065

REACTIONS (6)
  - Pleural effusion [Recovered/Resolved]
  - Polyserositis [Recovered/Resolved]
  - Atelectasis [Recovered/Resolved]
  - Hypotension [Unknown]
  - Sedation [Unknown]
  - Salivary hypersecretion [Unknown]
